FAERS Safety Report 10497552 (Version 1)
Quarter: 2014Q4

REPORT INFORMATION
  Report Type: Spontaneous
  Country: FR (occurrence: None)
  Receive Date: 20141002
  Receipt Date: 20141002
  Transmission Date: 20150528
  Serious: Yes (Hospitalization)
  Sender: FDA-Public Use
  Company Number: 7323140

PATIENT
  Age: 31 Year
  Sex: Female

DRUGS (3)
  1. LEVOTHYROX [Suspect]
     Active Substance: LEVOTHYROXINE
     Indication: HYPERTHYROIDISM
     Dosage: (1 DF, SCORED TABLET)
     Dates: start: 20140706
  2. THYROZOL [Suspect]
     Active Substance: METHIMAZOLE
     Indication: HYPERTHYROIDISM
     Route: 048
     Dates: start: 20140715, end: 20140821
  3. AVLOCARDYL /00030001/ [Suspect]
     Active Substance: PROPRANOLOL HYDROCHLORIDE
     Indication: HYPERTHYROIDISM
     Dosage: 1 DF (1 DF, SCORED TABLET)
     Route: 048
     Dates: start: 20140523

REACTIONS (1)
  - Angioedema [None]

NARRATIVE: CASE EVENT DATE: 20140819
